FAERS Safety Report 9997391 (Version 1)
Quarter: 2014Q1

REPORT INFORMATION
  Report Type: Spontaneous
  Country: US (occurrence: None)
  Receive Date: 20140218
  Receipt Date: 20140218
  Transmission Date: 20141002
  Serious: Yes (Other)
  Sender: FDA-Public Use
  Company Number: 1000051929

PATIENT
  Age: 36 Year
  Sex: Male

DRUGS (2)
  1. VIIBRYD (VILAZODONE HYDROCHLORIDE) ( 10 MILLIGRAM, TABLETS) [Suspect]
     Indication: DEPRESSION
     Dosage: 1 IN 1 D
     Route: 048
     Dates: start: 20131016, end: 20131022
  2. XANAX (ALPRAZOLAM) [Concomitant]

REACTIONS (2)
  - Diarrhoea [None]
  - Muscle spasms [None]
